FAERS Safety Report 5319881-2 (Version None)
Quarter: 2007Q2

REPORT INFORMATION
  Report Type: 
  Country: None (occurrence: None)
  Receive Date: 20070503
  Receipt Date: 20070425
  Transmission Date: 20071010
  Serious: Yes (Other)
  Sender: FDA-Public Use
  Company Number: 232217K07USA

PATIENT
  Age: 33 Year
  Sex: Female
  Weight: 88.905 kg

DRUGS (5)
  1. REBIF [Suspect]
     Indication: MULTIPLE SCLEROSIS
     Dosage: 44 MCG, 3 IN 1 WEEKS, SUBCUTANEOUS
     Route: 058
     Dates: start: 20070221
  2. PROZAC [Concomitant]
  3. NEURONTIN [Concomitant]
  4. NORTRIPTYLINE (NORTRIPTYLINE /00006501/) [Concomitant]
  5. ASPIRIN [Concomitant]

REACTIONS (2)
  - CONVULSION [None]
  - MALAISE [None]
